FAERS Safety Report 9410848 (Version 2)
Quarter: 2013Q4

REPORT INFORMATION
  Report Type: Spontaneous
  Country: US (occurrence: US)
  Receive Date: 20130719
  Receipt Date: 20131227
  Transmission Date: 20140711
  Serious: Yes (Hospitalization)
  Sender: FDA-Public Use
  Company Number: US-B.I. PHARMACEUTICALS,INC./RIDGEFIELD-2013-BI-20971BP

PATIENT
  Sex: Male
  Weight: 175.26 kg

DRUGS (10)
  1. PRADAXA [Suspect]
     Indication: ANTICOAGULANT THERAPY
     Dosage: 300 MG
     Route: 048
     Dates: start: 20110622, end: 20121126
  2. ASPIRIN [Concomitant]
     Dosage: 81 MG
     Route: 048
  3. LEVOTHYROXINE [Concomitant]
     Dosage: 125 MCG
     Route: 048
  4. ATORVASTATIN [Concomitant]
     Dosage: 20 MG
     Route: 048
  5. LISINOPRIL [Concomitant]
     Dosage: 2.5 MG
     Route: 048
  6. BENADRYL [Concomitant]
     Route: 048
  7. MULTIVITAMIN [Concomitant]
     Route: 048
  8. VITAMIN E [Concomitant]
     Dosage: 400 U
     Route: 048
  9. METOPROLOL [Concomitant]
     Dosage: 50 ML
     Route: 048
  10. FUROSEMIDE [Concomitant]
     Dosage: 80 MG
     Route: 048

REACTIONS (2)
  - Gastrointestinal haemorrhage [Unknown]
  - Anaemia [Unknown]
